FAERS Safety Report 20932732 (Version 2)
Quarter: 2022Q2

REPORT INFORMATION
  Report Type: Spontaneous
  Country: US (occurrence: US)
  Receive Date: 20220608
  Receipt Date: 20220617
  Transmission Date: 20220721
  Serious: No
  Sender: FDA-Public Use
  Company Number: US-PFIZER INC-202200804152

PATIENT
  Age: 68 Year
  Sex: Female

DRUGS (1)
  1. PAXLOVID [Suspect]
     Active Substance: NIRMATRELVIR\RITONAVIR
     Indication: COVID-19 treatment
     Dosage: UNK
     Dates: start: 20220604, end: 20220604

REACTIONS (8)
  - Dysgeusia [Unknown]
  - Malaise [Unknown]
  - Dry mouth [Unknown]
  - Illness [Unknown]
  - Nausea [Unknown]
  - Oral mucosal blistering [Unknown]
  - Dyspepsia [Unknown]
  - Feeding disorder [Unknown]

NARRATIVE: CASE EVENT DATE: 20220604
